FAERS Safety Report 9665152 (Version 2)
Quarter: 2013Q4

REPORT INFORMATION
  Report Type: Spontaneous
  Country: US (occurrence: US)
  Receive Date: 20131101
  Receipt Date: 20131112
  Transmission Date: 20140711
  Serious: No
  Sender: FDA-Public Use
  Company Number: US-PFIZER INC-2013308810

PATIENT
  Age: 76 Year
  Sex: Female

DRUGS (3)
  1. XANAX [Suspect]
     Dosage: TWO 0.025 PILLS A DAY
  2. XANAX [Suspect]
     Dosage: SOMETIMES ONE
  3. XANAX [Suspect]
     Dosage: SOMETIMES ONE HALF

REACTIONS (1)
  - Anxiety [Unknown]
